FAERS Safety Report 9066793 (Version 2)
Quarter: 2013Q1

REPORT INFORMATION
  Report Type: Spontaneous
  Country: FR (occurrence: FR)
  Receive Date: 20130214
  Receipt Date: 20130325
  Transmission Date: 20140127
  Serious: Yes (Other)
  Sender: FDA-Public Use
  Company Number: FR-GLAXOSMITHKLINE-B0833865A

PATIENT
  Age: 70 Year
  Sex: Female
  Weight: 68 kg

DRUGS (2)
  1. TYVERB [Suspect]
     Indication: BREAST CANCER METASTATIC
     Dosage: 500MG TWICE PER DAY
     Route: 048
     Dates: start: 20120926, end: 20130131
  2. XELODA [Suspect]
     Indication: BREAST CANCER METASTATIC
     Dosage: 3000MG PER DAY
     Route: 048
     Dates: start: 20121004, end: 20130122

REACTIONS (20)
  - Diarrhoea [Recovered/Resolved]
  - Rash erythematous [Recovered/Resolved]
  - Paronychia [Recovering/Resolving]
  - Rosacea [Recovering/Resolving]
  - Dry skin [Recovering/Resolving]
  - Skin fissures [Recovering/Resolving]
  - Eye disorder [Recovering/Resolving]
  - Anal fissure [Recovering/Resolving]
  - Vaginal laceration [Recovering/Resolving]
  - Mouth ulceration [Recovering/Resolving]
  - Oral herpes [Recovering/Resolving]
  - Palmar-plantar erythrodysaesthesia syndrome [Recovered/Resolved]
  - Lacrimation increased [None]
  - Eye pruritus [None]
  - Decreased appetite [None]
  - Defaecation urgency [None]
  - Dyspepsia [None]
  - Skin atrophy [None]
  - Skin fissures [None]
  - Skin lesion [None]
